FAERS Safety Report 18732279 (Version 1)
Quarter: 2021Q1

REPORT INFORMATION
  Report Type: Spontaneous
  Country: US (occurrence: US)
  Receive Date: 20210112
  Receipt Date: 20210112
  Transmission Date: 20210419
  Serious: No
  Sender: FDA-Public Use
  Company Number: US-TEVA-2021-US-1866753

PATIENT
  Sex: Female

DRUGS (2)
  1. LORAZEPAM TEVA [Suspect]
     Active Substance: LORAZEPAM
     Indication: ANXIETY
     Dosage: 2 DOSAGE FORMS DAILY;
     Route: 065
     Dates: start: 20210103
  2. LORAZEPAM TEVA [Suspect]
     Active Substance: LORAZEPAM
     Indication: IRRITABLE BOWEL SYNDROME

REACTIONS (2)
  - Pruritus [Not Recovered/Not Resolved]
  - Product substitution issue [Unknown]

NARRATIVE: CASE EVENT DATE: 20210103
